FAERS Safety Report 6453502-0 (Version None)
Quarter: 2009Q4

REPORT INFORMATION
  Report Type: 
  Country: None (occurrence: None)
  Receive Date: 20091117
  Receipt Date: 20091109
  Transmission Date: 20100525
  Serious: Yes (Death)
  Sender: FDA-Public Use
  Company Number: 2009AL007212

PATIENT
  Age: 41 Year
  Sex: Male

DRUGS (1)
  1. TRAMADOL HYDROCHLORIDE [Suspect]
     Dosage: 100 MG; PO
     Route: 048
     Dates: start: 20090718, end: 20090718

REACTIONS (1)
  - DEATH [None]
